FAERS Safety Report 18238393 (Version 1)
Quarter: 2020Q3

REPORT INFORMATION
  Report Type: Spontaneous
  Country: IT (occurrence: IT)
  Receive Date: 20200907
  Receipt Date: 20200907
  Transmission Date: 20201103
  Serious: Yes (Hospitalization)
  Sender: FDA-Public Use
  Company Number: NVSC2020IT241836

PATIENT
  Age: 83 Year
  Sex: Female

DRUGS (2)
  1. LETROZOLE. [Concomitant]
     Active Substance: LETROZOLE
     Indication: BREAST CANCER STAGE IV
     Dosage: 1 DF, QD
     Route: 048
     Dates: start: 20200513, end: 20200625
  2. KISQALI [Suspect]
     Active Substance: RIBOCICLIB
     Indication: METASTATIC NEOPLASM
     Dosage: 600 MG, QD
     Route: 048
     Dates: start: 20200513, end: 20200625

REACTIONS (2)
  - Transaminases increased [Not Recovered/Not Resolved]
  - Jaundice [Not Recovered/Not Resolved]

NARRATIVE: CASE EVENT DATE: 20200625
